FAERS Safety Report 19687974 (Version 1)
Quarter: 2021Q3

REPORT INFORMATION
  Report Type: Spontaneous
  Country: JP (occurrence: JP)
  Receive Date: 20210812
  Receipt Date: 20210812
  Transmission Date: 20211014
  Serious: Yes (Hospitalization, Other)
  Sender: FDA-Public Use
  Company Number: JP-TEVA-2021-JP-1940032

PATIENT
  Age: 8 Decade
  Sex: Male

DRUGS (9)
  1. ASENAPINE. [Suspect]
     Active Substance: ASENAPINE
     Indication: DEMENTIA ALZHEIMER^S TYPE
     Dosage: 5 MILLIGRAM DAILY;
     Route: 065
  2. DULOXETINE. [Suspect]
     Active Substance: DULOXETINE
     Indication: DEMENTIA
     Route: 065
  3. ASENAPINE. [Suspect]
     Active Substance: ASENAPINE
     Indication: DEMENTIA ALZHEIMER^S TYPE
     Dosage: 10 MILLIGRAM DAILY;
     Route: 065
  4. QUETIAPINE. [Concomitant]
     Active Substance: QUETIAPINE
     Indication: DEMENTIA ALZHEIMER^S TYPE
     Dosage: 25 MILLIGRAM DAILY;
     Route: 065
  5. HALOPERIDOL. [Suspect]
     Active Substance: HALOPERIDOL
     Indication: DEMENTIA ALZHEIMER^S TYPE
     Dosage: 1 MILLIGRAM DAILY;
     Route: 065
  6. CLONAZEPAM. [Concomitant]
     Active Substance: CLONAZEPAM
     Indication: DEMENTIA ALZHEIMER^S TYPE
     Dosage: .5 MILLIGRAM DAILY;
     Route: 065
  7. MEMANTINE. [Concomitant]
     Active Substance: MEMANTINE
     Indication: DEMENTIA ALZHEIMER^S TYPE
     Route: 065
  8. MIRTAZAPINE. [Suspect]
     Active Substance: MIRTAZAPINE
     Indication: DEMENTIA
     Route: 065
  9. GALANTAMINE. [Concomitant]
     Active Substance: GALANTAMINE
     Indication: DEMENTIA ALZHEIMER^S TYPE
     Dosage: 8 MILLIGRAM DAILY;
     Route: 065

REACTIONS (3)
  - Tourette^s disorder [Recovering/Resolving]
  - Off label use [Unknown]
  - Drug ineffective [Unknown]
